FAERS Safety Report 5208866-2 (Version None)
Quarter: 2007Q1

REPORT INFORMATION
  Report Type: 
  Country: None (occurrence: None)
  Receive Date: 20070116
  Receipt Date: 20070108
  Transmission Date: 20070707
  Serious: Yes (Hospitalization)
  Sender: FDA-Public Use
  Company Number: FR-BRISTOL-MYERS SQUIBB COMPANY-13641741

PATIENT
  Age: 28 Year
  Sex: Female

DRUGS (19)
  1. ENDOXAN [Suspect]
     Indication: ACUTE LYMPHOCYTIC LEUKAEMIA
     Route: 042
     Dates: start: 20061107
  2. KIDROLASE [Suspect]
     Indication: ACUTE LYMPHOCYTIC LEUKAEMIA
     Route: 042
     Dates: start: 20061107
  3. CERUBIDINE [Suspect]
     Indication: ACUTE LYMPHOCYTIC LEUKAEMIA
     Dates: start: 20061107
  4. ONCOVIN [Suspect]
     Indication: ACUTE LYMPHOCYTIC LEUKAEMIA
     Route: 042
     Dates: start: 20061107
  5. CANCIDAS [Suspect]
     Indication: ACUTE LYMPHOCYTIC LEUKAEMIA
     Route: 042
     Dates: start: 20061116
  6. LUTENYL [Suspect]
     Route: 048
  7. LENOGRASTIM [Concomitant]
  8. IMIPENEM [Concomitant]
  9. ACYCLOVIR [Concomitant]
  10. VITAMIN K [Concomitant]
  11. METOCLOPRAMIDE [Concomitant]
  12. ZOFRAN [Concomitant]
  13. OMEPRAZOLE [Concomitant]
  14. ACLOTIN [Concomitant]
  15. BACTRIM DS [Concomitant]
  16. IMOVANE [Concomitant]
  17. XANAX [Concomitant]
  18. HEPARIN [Concomitant]
  19. CORTICOSTEROID [Concomitant]
     Dates: start: 20061107

REACTIONS (1)
  - PHLEBITIS [None]
